FAERS Safety Report 6844395-8 (Version None)
Quarter: 2010Q3

REPORT INFORMATION
  Report Type: 
  Country: None (occurrence: None)
  Receive Date: 20100715
  Receipt Date: 20100714
  Transmission Date: 20110219
  Serious: Yes (Hospitalization)
  Sender: FDA-Public Use
  Company Number: AU-SANOFI-AVENTIS-2010SA025227

PATIENT
  Age: 78 Year
  Sex: Female

DRUGS (14)
  1. LANTUS [Suspect]
     Route: 058
     Dates: start: 20090501
  2. AUTOPEN 24 [Suspect]
     Dates: start: 20090501
  3. AUTOPEN 24 [Suspect]
  4. ASPIRIN [Concomitant]
  5. PANAMAX [Concomitant]
  6. NEXIUM [Concomitant]
  7. VITAMIN D [Concomitant]
  8. COVERSYL /FRA/ [Concomitant]
  9. METFORMIN HCL [Concomitant]
  10. DIAMICRON [Concomitant]
  11. CRESTOR [Concomitant]
  12. APIDRA [Concomitant]
     Dosage: 6UNITS AT LUNCH AND DINNER
  13. PREDNISOLONE [Concomitant]
  14. PREDNISOLONE [Concomitant]

REACTIONS (2)
  - CORONARY ARTERY BYPASS [None]
  - HYPOGLYCAEMIA [None]
